FAERS Safety Report 11847515 (Version 1)
Quarter: 2015Q4

REPORT INFORMATION
  Report Type: Spontaneous
  Country: US (occurrence: US)
  Receive Date: 20151217
  Receipt Date: 20151217
  Transmission Date: 20160305
  Serious: Yes (Other)
  Sender: FDA-Public Use
  Company Number: US-FRESENIUS KABI-FK201506666

PATIENT
  Age: 39 Year
  Sex: Female

DRUGS (4)
  1. TOPOTECAN [Suspect]
     Active Substance: TOPOTECAN\TOPOTECAN HYDROCHLORIDE
     Indication: MEDULLOBLASTOMA RECURRENT
     Route: 065
  2. CISPLATIN (MANUFACTURER UNKNOWN) [Suspect]
     Active Substance: CISPLATIN
     Indication: MEDULLOBLASTOMA RECURRENT
     Route: 065
  3. CYCLOPHOSPHAMIDE. [Suspect]
     Active Substance: CYCLOPHOSPHAMIDE
     Indication: MEDULLOBLASTOMA RECURRENT
  4. ETOPOSIDE (MANUFACTURER UNKNOWN) [Suspect]
     Active Substance: ETOPOSIDE
     Indication: MEDULLOBLASTOMA RECURRENT
     Route: 065

REACTIONS (3)
  - Infection [Unknown]
  - Mucosal inflammation [Unknown]
  - Thrombocytopenia [Unknown]
